FAERS Safety Report 18781080 (Version 1)
Quarter: 2021Q1

REPORT INFORMATION
  Report Type: Spontaneous
  Country: US (occurrence: US)
  Receive Date: 20210123
  Receipt Date: 20210123
  Transmission Date: 20210419
  Serious: Yes (Hospitalization)
  Sender: FDA-Public Use
  Company Number: None

PATIENT
  Sex: Male

DRUGS (1)
  1. TACROLIMUS (DR REDDY) [Suspect]
     Active Substance: TACROLIMUS
     Indication: MYELODYSPLASTIC SYNDROME
     Dosage: ?          OTHER FREQUENCY:EVERY12HOURS ;?
     Route: 048
     Dates: start: 20201121

REACTIONS (1)
  - Bone marrow transplant [None]
